FAERS Safety Report 14655933 (Version 1)
Quarter: 2018Q1

REPORT INFORMATION
  Report Type: Other
  Country: CA (occurrence: CA)
  Receive Date: 20180319
  Receipt Date: 20180319
  Transmission Date: 20180509
  Serious: Yes (Hospitalization)
  Sender: FDA-Public Use
  Company Number: CA-GLENMARK PHARMACEUTICALS-2018GMK033290

PATIENT

DRUGS (11)
  1. SUFENTANIL CITRATE SANDOZ [Suspect]
     Active Substance: SUFENTANIL CITRATE
     Dosage: UNK, TID
     Route: 060
  2. HYDROMORPHONE [Suspect]
     Active Substance: HYDROMORPHONE
     Dosage: 15 MG, UNK
     Route: 058
  3. METHADONE [Suspect]
     Active Substance: METHADONE HYDROCHLORIDE
     Dosage: 12.0 MG, TID
     Route: 058
  4. HYDROMORPHONE [Suspect]
     Active Substance: HYDROMORPHONE
     Dosage: UNK
     Route: 058
  5. KETAMINE HYDROCHLORIDE. [Suspect]
     Active Substance: KETAMINE HYDROCHLORIDE
     Indication: PELVIC PAIN
     Dosage: 500 MG, QD; DOSAGE FORM: SOLUTION INTRAMUSCULAR
     Route: 058
  6. SUFENTANIL CITRATE SANDOZ [Suspect]
     Active Substance: SUFENTANIL CITRATE
     Dosage: 75 MCG, UNK
     Route: 060
  7. HYDROMORPHONE [Suspect]
     Active Substance: HYDROMORPHONE
     Indication: PELVIC PAIN
     Dosage: 12.5 MG, UNK
     Route: 058
  8. HYDROMORPHONE [Suspect]
     Active Substance: HYDROMORPHONE
     Dosage: UNK
     Route: 058
  9. GABAPENTIN. [Suspect]
     Active Substance: GABAPENTIN
     Indication: PELVIC PAIN
     Dosage: 4.0 MG, TID (3 EVERY 1 DAY)
     Route: 048
  10. METHADONE [Suspect]
     Active Substance: METHADONE HYDROCHLORIDE
     Indication: PELVIC PAIN
     Dosage: 15 MG, TID
     Route: 065
  11. SUFENTANIL CITRATE SANDOZ [Suspect]
     Active Substance: SUFENTANIL CITRATE
     Indication: PELVIC PAIN
     Dosage: 0.9 UNK
     Route: 060

REACTIONS (3)
  - Drug ineffective [Unknown]
  - Product use in unapproved indication [Unknown]
  - Delirium [Recovering/Resolving]
